FAERS Safety Report 26122705 (Version 1)
Quarter: 2025Q4

REPORT INFORMATION
  Report Type: Spontaneous
  Country: CH (occurrence: CH)
  Receive Date: 20251204
  Receipt Date: 20251204
  Transmission Date: 20260118
  Serious: Yes (Death, Other)
  Sender: FRESENIUS KABI
  Company Number: CH-FreseniusKabi-FK202516329

PATIENT
  Age: 73 Year
  Sex: Female
  Weight: 79 kg

DRUGS (14)
  1. PROPOFOL [Suspect]
     Active Substance: PROPOFOL
     Indication: Status epilepticus
     Dosage: -INFUSION 1440 MG?CUMULATIVE DAILY DOSE ADMINISTERED TO THE PATIENT CONCERNED (REFERS TO BOTH PROPOF
     Dates: start: 20251017, end: 20251017
  2. PROPOFOL [Suspect]
     Active Substance: PROPOFOL
     Dosage: -INFUSION 7800 MG?CUMULATIVE DAILY DOSE ADMINISTERED TO THE PATIENT CONCERNED (REFERS TO BOTH PROPOF
     Dates: start: 20251018, end: 20251018
  3. PROPOFOL [Suspect]
     Active Substance: PROPOFOL
     Dosage: -INFUSION 10800 MG?CUMULATIVE DAILY DOSE ADMINISTERED TO THE PATIENT CONCERNED (REFERS TO BOTH PROPO
     Dates: start: 20251019, end: 20251019
  4. PROPOFOL [Suspect]
     Active Substance: PROPOFOL
     Dosage: -INFUSION 12500 MG CUMULATIVE DAILY DOSE ADMINISTERED TO THE PATIENT CONCERNED (REFERS TO BOTH PROPO
     Dates: start: 20251020, end: 20251020
  5. PROPOFOL [Suspect]
     Active Substance: PROPOFOL
     Indication: Status epilepticus
     Dosage: AT 16:43
     Route: 040
     Dates: start: 20251017, end: 20251017
  6. KETAMIN [Suspect]
     Active Substance: KETAMINE
     Indication: Status epilepticus
     Route: 040
     Dates: start: 20251017, end: 20251020
  7. KEPPRA [Suspect]
     Active Substance: LEVETIRACETAM
     Indication: Status epilepticus
     Route: 040
     Dates: start: 20251017, end: 20251020
  8. MIDAZOLAM HYDROCHLORIDE [Suspect]
     Active Substance: MIDAZOLAM HYDROCHLORIDE
     Indication: Product used for unknown indication
     Dosage: DORMICUM FROM 17.10.2025: 30MG/H-} TO 20-}15- }10MG/H
     Route: 040
     Dates: start: 20251017, end: 20251020
  9. VIMPAT [Suspect]
     Active Substance: LACOSAMIDE
     Indication: Status epilepticus
     Dosage: 17-OCT-2025 DOSE INCREASED
     Route: 040
     Dates: start: 20251017, end: 20251020
  10. ARGIPRESSIN [Suspect]
     Active Substance: ARGIPRESSIN
     Indication: Product used for unknown indication
     Dosage: WITH INCREASING NORADRENALINE DEMAND?ON THE PERFUSOR
     Route: 040
     Dates: start: 20251020
  11. VALPROATE [Suspect]
     Active Substance: VALPROIC ACID
     Indication: Epilepsy
     Dosage: LONG-TERM MEDICATION
     Route: 040
     Dates: start: 20251017, end: 20251020
  12. AMOXICILLIN\CLAVULANATE POTASSIUM [Concomitant]
     Active Substance: AMOXICILLIN\CLAVULANATE POTASSIUM
     Indication: Pneumonia aspiration
     Route: 040
     Dates: start: 20251019, end: 20251020
  13. NOREPINEPHRINE BITARTRATE [Concomitant]
     Active Substance: NOREPINEPHRINE BITARTRATE
     Indication: Product used for unknown indication
     Dosage: ON THE PERFUSOR?HD EFFECT OF ANAESTHETICS, DURING SEPSIS/SEPTIC SHOCK
     Route: 040
     Dates: start: 20251017, end: 20251020
  14. SOLU-CORTEF [Concomitant]
     Active Substance: HYDROCORTISONE SODIUM SUCCINATE
     Indication: Sepsis
     Route: 040
     Dates: start: 20251020, end: 20251020

REACTIONS (2)
  - Atrioventricular block complete [Fatal]
  - Drug interaction [Fatal]

NARRATIVE: CASE EVENT DATE: 20251020
